FAERS Safety Report 4806127-4 (Version None)
Quarter: 2005Q4

REPORT INFORMATION
  Report Type: 
  Country: None (occurrence: None)
  Receive Date: 20051021
  Receipt Date: 20051007
  Transmission Date: 20060501
  Serious: Yes (Hospitalization)
  Sender: FDA-Public Use
  Company Number: ES-ROCHE-420364

PATIENT
  Age: 66 Year
  Sex: Female

DRUGS (2)
  1. MYCOPHENOLATE MOFETIL [Suspect]
     Route: 048
     Dates: start: 20050716
  2. TACROLIMUS [Suspect]
     Route: 048
     Dates: start: 20050722

REACTIONS (2)
  - BLOOD CREATININE INCREASED [None]
  - UROGENITAL FISTULA [None]
